FAERS Safety Report 12524957 (Version 2)
Quarter: 2016Q3

REPORT INFORMATION
  Report Type: Spontaneous
  Country: PL (occurrence: PL)
  Receive Date: 20160704
  Receipt Date: 20160711
  Transmission Date: 20161109
  Serious: Yes (Hospitalization, Other)
  Sender: FDA-Public Use
  Company Number: PL-JNJFOC-20160626974

PATIENT
  Sex: Male

DRUGS (3)
  1. XARELTO [Suspect]
     Active Substance: RIVAROXABAN
     Indication: ANTICOAGULANT THERAPY
     Route: 048
  2. GENTAMICIN. [Concomitant]
     Active Substance: GENTAMICIN
     Dosage: 2X150 MG
     Route: 065
  3. VANCOMYCIN [Concomitant]
     Active Substance: VANCOMYCIN
     Dosage: 3X1G
     Route: 065

REACTIONS (3)
  - Ischaemic stroke [Unknown]
  - Drug ineffective [Unknown]
  - Atrial thrombosis [Unknown]
